FAERS Safety Report 9167677 (Version 2)
Quarter: 2013Q1

REPORT INFORMATION
  Report Type: Spontaneous
  Country: US (occurrence: None)
  Receive Date: 20130304
  Receipt Date: 20130314
  Transmission Date: 20140127
  Serious: Yes (Other)
  Sender: FDA-Public Use
  Company Number: 7196447

PATIENT
  Sex: Female

DRUGS (1)
  1. LEVOTHYROXINE [Suspect]

REACTIONS (2)
  - Maternal exposure during pregnancy [None]
  - Caesarean section [None]
